FAERS Safety Report 5261640-3 (Version None)
Quarter: 2007Q1

REPORT INFORMATION
  Report Type: 
  Country: None (occurrence: None)
  Receive Date: 20061218
  Receipt Date: 20060811
  Transmission Date: 20070707
  Serious: No
  Sender: FDA-Public Use
  Company Number: US200608001261

PATIENT
  Age: 60 Year
  Sex: Male

DRUGS (2)
  1. CIALIS [Suspect]
     Dates: start: 20060501
  2. HUMALOG MIX PEN (INSULIN LISPRO) [Concomitant]

REACTIONS (1)
  - MUSCULAR WEAKNESS [None]
